FAERS Safety Report 5973293-7 (Version None)
Quarter: 2008Q4

REPORT INFORMATION
  Report Type: 
  Country: None (occurrence: None)
  Receive Date: 20081201
  Receipt Date: 20081120
  Transmission Date: 20090506
  Serious: Yes (Life-Threatening, Hospitalization)
  Sender: FDA-Public Use
  Company Number: JP-ASTRAZENECA-2008SE05469

PATIENT
  Age: 67 Year
  Sex: Female

DRUGS (7)
  1. BLOPRESS TABLETS 2 [Suspect]
     Indication: CARDIAC FAILURE
     Route: 048
     Dates: start: 20081113, end: 20081119
  2. LASIX [Concomitant]
     Route: 065
  3. HERBESSER [Concomitant]
     Route: 065
  4. RABEPRAZOLE SODIUM [Concomitant]
     Route: 048
  5. ASPIRIN [Concomitant]
     Route: 065
  6. WARFARIN SODIUM [Concomitant]
     Route: 048
  7. MEROPEN [Concomitant]
     Route: 042

REACTIONS (1)
  - INTERSTITIAL LUNG DISEASE [None]
